FAERS Safety Report 15804333 (Version 1)
Quarter: 2019Q1

REPORT INFORMATION
  Report Type: Spontaneous
  Country: US (occurrence: US)
  Receive Date: 20190109
  Receipt Date: 20190109
  Transmission Date: 20190417
  Serious: No
  Sender: FDA-Public Use
  Company Number: US-BAUSCH-BL-2018-007889

PATIENT
  Sex: Male

DRUGS (4)
  1. BUDESONIDE INHALATION SOLUTION [Concomitant]
     Indication: PRODUCT USED FOR UNKNOWN INDICATION
  2. DIURIL [Suspect]
     Active Substance: CHLOROTHIAZIDE
     Indication: PRODUCT USED FOR UNKNOWN INDICATION
     Dosage: VIA G-TUBE ADMINISTRATION
     Route: 048
     Dates: start: 20171221
  3. DUONEB [Concomitant]
     Active Substance: ALBUTEROL SULFATE\IPRATROPIUM BROMIDE
     Indication: PRODUCT USED FOR UNKNOWN INDICATION
  4. PROCRIT [Concomitant]
     Active Substance: ERYTHROPOIETIN
     Indication: PRODUCT USED FOR UNKNOWN INDICATION

REACTIONS (2)
  - Product odour abnormal [Unknown]
  - Vomiting [Unknown]
